FAERS Safety Report 4655646-2 (Version None)
Quarter: 2005Q2

REPORT INFORMATION
  Report Type: 
  Country: None (occurrence: None)
  Receive Date: 20050505
  Receipt Date: 20050414
  Transmission Date: 20051028
  Serious: Yes (Hospitalization)
  Sender: FDA-Public Use
  Company Number: USA050495679

PATIENT
  Age: 65 Year
  Sex: Male
  Weight: 91 kg

DRUGS (1)
  1. HUMALOG [Suspect]
     Indication: DIABETES MELLITUS
     Dosage: 8 U/4 DAY
     Dates: start: 19960101

REACTIONS (8)
  - ARTERIAL GRAFT [None]
  - BLOOD GLUCOSE INCREASED [None]
  - CAROTID ARTERY DISEASE [None]
  - DIFFICULTY IN WALKING [None]
  - DRUG HYPERSENSITIVITY [None]
  - FINGER DEFORMITY [None]
  - MUSCLE TIGHTNESS [None]
  - PHARMACEUTICAL PRODUCT COMPLAINT [None]
